FAERS Safety Report 15606627 (Version 1)
Quarter: 2018Q4

REPORT INFORMATION
  Report Type: Spontaneous
  Country: US (occurrence: US)
  Receive Date: 20181106
  Receipt Date: 20181106
  Transmission Date: 20190205
  Serious: Yes (Death, Hospitalization)
  Sender: FDA-Public Use
  Company Number: None

PATIENT
  Sex: Male
  Weight: 82.9 kg

DRUGS (5)
  1. MITOXANTRONE HYDROCHLORIDE. [Suspect]
     Active Substance: MITOXANTRONE HYDROCHLORIDE
     Dates: end: 20181012
  2. ONCASPAR [Suspect]
     Active Substance: PEGASPARGASE
     Dates: end: 20181027
  3. DEXAMETHASONE. [Suspect]
     Active Substance: DEXAMETHASONE
     Dates: end: 20181029
  4. METHOTREXATE. [Suspect]
     Active Substance: METHOTREXATE
     Dates: end: 20181025
  5. VINCRISTINE SULFATE. [Suspect]
     Active Substance: VINCRISTINE SULFATE
     Dates: end: 20181025

REACTIONS (7)
  - Blood pressure decreased [None]
  - Cardio-respiratory arrest [None]
  - Hypovolaemic shock [None]
  - Fungal infection [None]
  - Respiratory distress [None]
  - Sepsis [None]
  - Mental status changes [None]
